FAERS Safety Report 7002449-X (Version None)
Quarter: 2010Q3

REPORT INFORMATION
  Report Type: 
  Country: None (occurrence: None)
  Receive Date: 20100920
  Receipt Date: 20100917
  Transmission Date: 20110219
  Serious: Yes (Hospitalization, Other)
  Sender: FDA-Public Use
  Company Number: US-BRISTOL-MYERS SQUIBB COMPANY-15283070

PATIENT
  Age: 59 Year
  Sex: Female

DRUGS (6)
  1. METFORMIN HCL [Interacting]
  2. CIMETIDINE [Interacting]
     Indication: GASTROOESOPHAGEAL REFLUX DISEASE
  3. ATENOLOL [Suspect]
  4. LISINOPRIL [Suspect]
  5. FENOFIBRATE [Suspect]
  6. FLUVASTATIN [Suspect]

REACTIONS (4)
  - DRUG INTERACTION [None]
  - LACTIC ACIDOSIS [None]
  - PANCREATITIS ACUTE [None]
  - RENAL FAILURE ACUTE [None]
